FAERS Safety Report 26094001 (Version 3)
Quarter: 2025Q4

REPORT INFORMATION
  Report Type: Spontaneous
  Country: EU (occurrence: EU)
  Receive Date: 20251126
  Receipt Date: 20251210
  Transmission Date: 20260118
  Serious: Yes (Hospitalization, Other)
  Sender: ALEXION PHARMACEUTICALS
  Company Number: EU-HALEON-2275200

PATIENT
  Age: 50 Year
  Sex: Female

DRUGS (4)
  1. NEXIUM [Suspect]
     Active Substance: ESOMEPRAZOLE MAGNESIUM
     Dosage: 40 MILLIGRAM
     Route: 065
  2. NEXIUM [Suspect]
     Active Substance: ESOMEPRAZOLE MAGNESIUM
     Dosage: 20 MILLIGRAM, QD
     Route: 065
  3. DULOXETINE [Concomitant]
     Active Substance: DULOXETINE
     Indication: Product used for unknown indication
  4. TRAZODONE [Concomitant]
     Active Substance: TRAZODONE HYDROCHLORIDE
     Indication: Product used for unknown indication
     Dosage: IN THE EVENING

REACTIONS (20)
  - Wernicke^s encephalopathy [Recovering/Resolving]
  - Dysarthria [Recovering/Resolving]
  - Headache [Recovering/Resolving]
  - Hypomagnesaemia [Recovering/Resolving]
  - Photophobia [Recovering/Resolving]
  - Nystagmus [Recovering/Resolving]
  - Gait disturbance [Recovering/Resolving]
  - Electrolyte imbalance [Recovered/Resolved]
  - Rhabdomyolysis [Recovered/Resolved]
  - Hypokalaemia [Recovering/Resolving]
  - Fall [Unknown]
  - Seizure [Recovering/Resolving]
  - Paraesthesia [Recovering/Resolving]
  - Vertigo [Recovering/Resolving]
  - Speech disorder [Recovering/Resolving]
  - Tachycardia [Recovering/Resolving]
  - Tremor [Recovering/Resolving]
  - Agitation [Recovering/Resolving]
  - Renal failure [Recovered/Resolved]
  - Respiratory alkalosis [Recovering/Resolving]
